FAERS Safety Report 16591318 (Version 4)
Quarter: 2019Q4

REPORT INFORMATION
  Report Type: Spontaneous
  Country: US (occurrence: US)
  Receive Date: 20190718
  Receipt Date: 20191218
  Transmission Date: 20200122
  Serious: Yes (Death)
  Sender: FDA-Public Use
  Company Number: US-PURDUE-USA-2019-0147761

PATIENT
  Age: 74 Year
  Sex: Male

DRUGS (1)
  1. HYDROCODONE BITARTRATE (SIMILAR TO NDA 206627) [Suspect]
     Active Substance: HYDROCODONE BITARTRATE
     Indication: PAIN
     Dosage: 60 MG, DAILY
     Route: 048

REACTIONS (6)
  - Therapeutic product effect decreased [Unknown]
  - Diarrhoea [Unknown]
  - Myocardial infarction [Fatal]
  - Tremor [Unknown]
  - Vomiting [Unknown]
  - Drug withdrawal syndrome [Unknown]

NARRATIVE: CASE EVENT DATE: 201901
